FAERS Safety Report 4989091-7 (Version None)
Quarter: 2006Q1

REPORT INFORMATION
  Report Type: 
  Country: None (occurrence: None)
  Receive Date: 20060314
  Receipt Date: 20051213
  Transmission Date: 20060701
  Serious: Yes (Other)
  Sender: FDA-Public Use
  Company Number: 200514302BCC

PATIENT
  Age: 58 Year
  Sex: Female
  Weight: 107.0489 kg

DRUGS (12)
  1. ALEVE (CAPLET) [Suspect]
     Indication: ARTHRALGIA
     Dosage: 440 MG, TOTAL DAILY, ORAL
     Route: 048
     Dates: start: 20010101
  2. PREVACID [Concomitant]
  3. LASIX [Concomitant]
  4. ACTOS [Concomitant]
  5. KLON-CON [Concomitant]
  6. ALLOPURINOL [Concomitant]
  7. NORVASC [Concomitant]
  8. COLCHICINE [Concomitant]
  9. HYZAAR [Concomitant]
  10. GABAPENTIN [Concomitant]
  11. XANAX [Concomitant]
  12. SPIRONOLACTONE [Concomitant]

REACTIONS (2)
  - INTESTINAL PERFORATION [None]
  - RENAL FAILURE [None]
